FAERS Safety Report 10052454 (Version 1)
Quarter: 2014Q2

REPORT INFORMATION
  Report Type: Spontaneous
  Country: US (occurrence: US)
  Receive Date: 20140402
  Receipt Date: 20140402
  Transmission Date: 20141212
  Serious: Yes (Hospitalization, Disabling, Other)
  Sender: FDA-Public Use
  Company Number: US-ASTELLAS-2014US003223

PATIENT
  Age: 84 Year
  Sex: Male

DRUGS (1)
  1. XTANDI [Suspect]
     Indication: PRODUCT USED FOR UNKNOWN INDICATION
     Dosage: 160 MG, UID/QD
     Route: 048
     Dates: start: 20131015

REACTIONS (5)
  - Bronchitis [Recovered/Resolved]
  - Wheelchair user [Unknown]
  - Bronchitis [Recovered/Resolved]
  - Product physical issue [Unknown]
  - Dysphagia [Unknown]
